FAERS Safety Report 21172420 (Version 1)
Quarter: 2022Q3

REPORT INFORMATION
  Report Type: Spontaneous
  Country: US (occurrence: None)
  Receive Date: 20220803
  Receipt Date: 20220803
  Transmission Date: 20221027
  Serious: Yes (Life-Threatening, Other)
  Sender: FDA-Public Use
  Company Number: None

PATIENT
  Age: 46 Year
  Sex: Female
  Weight: 123.6 kg

DRUGS (4)
  1. MEROPENEM [Suspect]
     Active Substance: MEROPENEM
     Indication: Osteomyelitis
     Dosage: FREQUENCY : 3 TIMES A DAY;?
     Route: 040
     Dates: start: 20220722, end: 20220722
  2. DIPHENHYDRAMINE [Concomitant]
     Active Substance: DIPHENHYDRAMINE
     Dates: start: 20220722, end: 20220722
  3. EPINEPHRINE [Concomitant]
     Active Substance: EPINEPHRINE
     Dates: start: 20220722, end: 20220722
  4. PREDNISONE [Concomitant]
     Active Substance: PREDNISONE
     Dates: start: 20220722

REACTIONS (7)
  - Anaphylactic shock [None]
  - Swollen tongue [None]
  - Paraesthesia oral [None]
  - Chest discomfort [None]
  - Dyspnoea [None]
  - Nausea [None]
  - Lip pruritus [None]

NARRATIVE: CASE EVENT DATE: 20220722
